FAERS Safety Report 4294499-1 (Version None)
Quarter: 2004Q1

REPORT INFORMATION
  Report Type: 
  Country: None (occurrence: None)
  Receive Date: 20040211
  Receipt Date: 20040126
  Transmission Date: 20041129
  Serious: Yes (Other)
  Sender: FDA-Public Use
  Company Number: USA040156237

PATIENT
  Age: 79 Year
  Sex: Male
  Weight: 69 kg

DRUGS (4)
  1. FORTEO [Suspect]
     Indication: OSTEOPOROSIS
     Dosage: 20 UG/DAY
     Dates: start: 20030915, end: 20040109
  2. CARAFATE [Concomitant]
  3. CALCIUM [Concomitant]
  4. VITAMIN CAP [Concomitant]

REACTIONS (4)
  - ABASIA [None]
  - DYSSTASIA [None]
  - MUSCLE CRAMP [None]
  - PARAESTHESIA [None]
